FAERS Safety Report 12680275 (Version 1)
Quarter: 2016Q3

REPORT INFORMATION
  Report Type: Spontaneous
  Country: GB (occurrence: GB)
  Receive Date: 20160824
  Receipt Date: 20160824
  Transmission Date: 20161109
  Serious: Yes (Hospitalization)
  Sender: FDA-Public Use
  Company Number: GB-PFIZER INC-1465841

PATIENT
  Age: 16 Year
  Sex: Female
  Weight: 66 kg

DRUGS (27)
  1. AMITRIPTYLINE [Concomitant]
     Active Substance: AMITRIPTYLINE
     Dosage: 25 MG, UNK
     Dates: start: 20101015
  2. CALCIUM CARBONATE. [Concomitant]
     Active Substance: CALCIUM CARBONATE
     Dosage: 2.5 G, UNK
     Dates: start: 20100716
  3. GRANISETRON [Concomitant]
     Active Substance: GRANISETRON
     Dosage: 1 MG, UNK
     Dates: start: 20100620
  4. LACTULOSE. [Concomitant]
     Active Substance: LACTULOSE
     Dosage: 15 MG, UNK
     Dates: start: 20100725
  5. NABILONE [Concomitant]
     Active Substance: NABILONE
     Dosage: 3 MG, UNK
     Dates: start: 20100714
  6. SANDO K /00031402/ [Concomitant]
     Dosage: 4 DF, UNK
     Dates: start: 20100724
  7. DOXORUBICIN HCL [Suspect]
     Active Substance: DOXORUBICIN HYDROCHLORIDE
     Indication: RHABDOMYOSARCOMA
     Dosage: 60 MG, CYCLIC (60 MG, FREQ: 1 CYCLICAL; INTERVAL: 2)
     Route: 042
     Dates: start: 20100618
  8. METOCLOPRAMIDE. [Concomitant]
     Active Substance: METOCLOPRAMIDE
     Dosage: 30 MG, UNK
     Dates: start: 20100614
  9. ONDANSETRON [Concomitant]
     Active Substance: ONDANSETRON
     Dosage: 24 MG, UNK
     Dates: start: 20100722
  10. PARACETAMOL [Concomitant]
     Active Substance: ACETAMINOPHEN
     Dosage: 4 G, UNK
     Dates: start: 20100909
  11. IFOSFAMIDE. [Suspect]
     Active Substance: IFOSFAMIDE
     Indication: RHABDOMYOSARCOMA
     Dosage: 6 G, CYCLIC (6 G, FREQ: 1 CYCLICAL; INTERVAL: 2)
     Route: 042
     Dates: start: 20100618
  12. PHOSPHATE SANDOZ [Concomitant]
     Dosage: UNK
     Dates: start: 20100717
  13. ACTINOMYCIN D [Suspect]
     Active Substance: DACTINOMYCIN
     Indication: RHABDOMYOSARCOMA
     Dosage: 2 MG, CYCLIC (2 MG, FREQ: 1 CYCLICAL; INTERVAL: 1)
     Route: 042
     Dates: start: 20100618
  14. FENTANYL CITRATE. [Concomitant]
     Active Substance: FENTANYL CITRATE
     Dosage: 50 UG, UNK (50 UG, FREQ: 3 DAY; INTERVAL: 1)
     Dates: start: 20100713
  15. GABAPENTIN. [Concomitant]
     Active Substance: GABAPENTIN
     Dosage: 1500 MG, UNK
     Dates: start: 20100909
  16. VINCRISTINE SULFATE. [Suspect]
     Active Substance: VINCRISTINE SULFATE
     Indication: RHABDOMYOSARCOMA
     Dosage: 2 MG, CYCLIC (2 MG, FREQ: 1 CYCLICAL; INTERVAL:1)
     Route: 042
     Dates: start: 20100618
  17. LEVOMEPROMAZINE [Concomitant]
     Active Substance: LEVOMEPROMAZINE
     Dosage: 6 MG, UNK
     Dates: start: 20100924, end: 20100929
  18. COTRIMOXAZOLE [Concomitant]
     Active Substance: SULFAMETHOXAZOLE\TRIMETHOPRIM
     Dosage: 960 MG, UNK
     Dates: start: 20100621
  19. FLUCONAZOLE. [Concomitant]
     Active Substance: FLUCONAZOLE
     Dosage: 150 MG, UNK
     Dates: start: 20100924
  20. OMEPRAZOLE. [Concomitant]
     Active Substance: OMEPRAZOLE
     Dosage: 20 MG, UNK
     Dates: start: 20100713
  21. TAZOCIN [Concomitant]
     Active Substance: PIPERACILLIN SODIUM\TAZOBACTAM SODIUM
     Dosage: 18 G, UNK
     Dates: start: 20100722
  22. SANDOL P [Concomitant]
     Dosage: TTX3
     Dates: start: 20101103
  23. SENNA /00142201/ [Concomitant]
     Active Substance: SENNA LEAF
     Dosage: 15 MG, UNK
     Dates: start: 20100621
  24. SEVREDOL [Concomitant]
     Active Substance: MORPHINE
     Dosage: 20 MG, AS NEEDED (20 MG, EVERY 4 HOURS, FREQ: AS NEEDED)
     Dates: start: 20100617
  25. DEXAMETHASONE. [Concomitant]
     Active Substance: DEXAMETHASONE
     Indication: PRODUCT USED FOR UNKNOWN INDICATION
     Dosage: 24 MG, UNK
     Dates: start: 20100713, end: 20100930
  26. MAGNESIUM ASPARTATE [Concomitant]
     Active Substance: MAGNESIUM ASPARTATE
     Dosage: 20 MMOL, UNK
     Dates: start: 20100612
  27. SANDOL P [Concomitant]
     Dosage: TTX3
     Dates: start: 20100717

REACTIONS (2)
  - Febrile neutropenia [Recovered/Resolved]
  - Presyncope [Recovered/Resolved]

NARRATIVE: CASE EVENT DATE: 20100725
